FAERS Safety Report 14601948 (Version 1)
Quarter: 2018Q1

REPORT INFORMATION
  Report Type: Spontaneous
  Country: US (occurrence: US)
  Receive Date: 20180306
  Receipt Date: 20180306
  Transmission Date: 20180509
  Serious: Yes (Hospitalization)
  Sender: FDA-Public Use
  Company Number: US-VISTAPHARM, INC.-VER201802-000456

PATIENT
  Age: 72 Year
  Sex: Female

DRUGS (2)
  1. CODEINE [Suspect]
     Active Substance: CODEINE
     Indication: BACK PAIN
  2. HYDROCODONE AND ACETAMINOPHEN [Suspect]
     Active Substance: ACETAMINOPHEN\HYDROCODONE
     Indication: BACK PAIN
     Dosage: 4000 MG OF ACETAMINOPHEN

REACTIONS (4)
  - Confusional state [Unknown]
  - Somnolence [Unknown]
  - Metabolic acidosis [Recovering/Resolving]
  - Anion gap [Recovering/Resolving]
